FAERS Safety Report 4541650-1 (Version None)
Quarter: 2004Q4

REPORT INFORMATION
  Report Type: 
  Country: None (occurrence: None)
  Receive Date: 20041227
  Receipt Date: 20041209
  Transmission Date: 20050328
  Serious: Yes (Death)
  Sender: FDA-Public Use
  Company Number: 04KOR0268

PATIENT
  Age: 84 Year
  Sex: Female

DRUGS (34)
  1. AGGRASTAT [Suspect]
     Indication: MYOCARDIAL INFARCTION
     Dosage: SEE IMAGE
     Dates: start: 20040506, end: 20040507
  2. ACETAMINOPHEN [Concomitant]
  3. MAGNESIUM SULFATE [Concomitant]
  4. ASPIRIN (ACETYLSALYCYLIC ACID) (TABLETS) [Concomitant]
  5. CLOPIDOGREL BISULFATE [Concomitant]
  6. HEPARIN [Concomitant]
  7. SIMVASTATIN [Concomitant]
  8. ATENOLOL [Concomitant]
  9. CALCIUM CARBONATE (CALCIUM CARBONATE) [Concomitant]
  10. CODEINE) [Concomitant]
  11. CHLORHEXIDIENE GLUCONATE (CHLORHEXIDINE GLUCONATE) [Concomitant]
  12. ENALAPRIL MALEATE [Concomitant]
  13. ISOSORBIDE (ISOSORBIDE) [Concomitant]
  14. CALCIUM POLYSTRENE SULFONATE (CALCIUM POLYSTRENE) [Concomitant]
  15. CALCIUM HYDROXIDE [Concomitant]
  16. NITROGLYCERIN [Concomitant]
  17. SORBITOL (SORBITOL) [Concomitant]
  18. SUCRALFATE [Concomitant]
  19. WARFARIN SODIUM [Concomitant]
  20. DEXTROSE (GLUCOSE INJECTION) [Concomitant]
  21. CALCIUM GLUCONATE [Concomitant]
  22. DIGOXIN [Concomitant]
  23. DOPAMINE HCL (DOPAMINE HCL IN 5% DEXTROSE INJ) [Concomitant]
  24. FAMOTIDINE [Concomitant]
  25. FUROSEMIDE [Concomitant]
  26. INSULIN [Concomitant]
  27. ISOSORBIDE DINITRATE [Concomitant]
  28. POTASSIUM CHLORIDE [Concomitant]
  29. LIDOCAINE [Concomitant]
  30. LORAZEPAM [Concomitant]
  31. MIDAZOLAM HCL [Concomitant]
  32. MORPHINE SULFATE [Concomitant]
  33. SODIUM CHLORIDE 0.9% [Concomitant]
  34. MEPERIDINE HCL [Concomitant]

REACTIONS (2)
  - CARDIAC DEATH [None]
  - CARDIAC FAILURE [None]
